FAERS Safety Report 4892962-3 (Version None)
Quarter: 2005Q4

REPORT INFORMATION
  Report Type: 
  Country: None (occurrence: None)
  Receive Date: 20051220
  Receipt Date: 20050825
  Transmission Date: 20060501
  Serious: Yes (Other)
  Sender: FDA-Public Use
  Company Number: 414496

PATIENT
  Age: 60 Year
  Sex: Female

DRUGS (5)
  1. BONIVA [Suspect]
     Indication: OSTEOPOROSIS
     Dosage: 150 MG 1 PER MONTH ORAL
     Route: 048
     Dates: start: 20050815, end: 20050815
  2. ZOLOFT [Concomitant]
  3. ATIVAN [Concomitant]
  4. ALORA [Concomitant]
  5. ZYTREC (CETIRIZINE HYDROCHLORIDE) [Concomitant]

REACTIONS (2)
  - ABDOMINAL DISCOMFORT [None]
  - OESOPHAGEAL DISORDER [None]
